FAERS Safety Report 5629908-6 (Version None)
Quarter: 2008Q1

REPORT INFORMATION
  Report Type: 
  Country: None (occurrence: None)
  Receive Date: 20080218
  Receipt Date: 20080206
  Transmission Date: 20080703
  Serious: Yes (Hospitalization)
  Sender: FDA-Public Use
  Company Number: PHEH2008US01593

PATIENT
  Age: 37 Year
  Sex: Female
  Weight: 62.131 kg

DRUGS (4)
  1. REBIF [Suspect]
     Indication: MULTIPLE SCLEROSIS
     Dosage: 44 UG, TIW
     Route: 058
     Dates: start: 20050401, end: 20070502
  2. GONAL-F [Suspect]
     Indication: INFERTILITY FEMALE
     Dates: start: 20070401, end: 20070401
  3. PRENATAL VITAMINS [Suspect]
  4. LETROZOLE [Suspect]
     Indication: INFERTILITY
     Dosage: UNK, UNK
     Dates: start: 20070401, end: 20070401

REACTIONS (3)
  - CAESAREAN SECTION [None]
  - DRUG EXPOSURE DURING PREGNANCY [None]
  - PREMATURE LABOUR [None]
